FAERS Safety Report 9325068 (Version 1)
Quarter: 2013Q2

REPORT INFORMATION
  Report Type: Report from Study
  Country: GB (occurrence: US)
  Receive Date: 20130603
  Receipt Date: 20130603
  Transmission Date: 20140414
  Serious: Yes (Hospitalization)
  Sender: FDA-Public Use
  Company Number: US-B.I. PHARMACEUTICALS,INC./RIDGEFIELD-2013-BI-15071GD

PATIENT
  Age: 59 Year
  Sex: Male

DRUGS (2)
  1. TIOTROPIUM [Suspect]
     Indication: CHRONIC OBSTRUCTIVE PULMONARY DISEASE
     Dosage: 18 MCG
     Route: 055
     Dates: start: 20110224, end: 20110225
  2. TIOTROPIUM [Suspect]
     Dosage: 18 MCG
     Route: 055
     Dates: start: 20110308, end: 20110322

REACTIONS (1)
  - Cardiac failure congestive [Not Recovered/Not Resolved]
